FAERS Safety Report 9813543 (Version 1)
Quarter: 2014Q1

REPORT INFORMATION
  Report Type: Spontaneous
  Country: US (occurrence: None)
  Receive Date: 20140109
  Receipt Date: 20140109
  Transmission Date: 20141002
  Serious: Yes (Hospitalization)
  Sender: FDA-Public Use
  Company Number: None

PATIENT
  Age: 49 Year
  Sex: Female

DRUGS (1)
  1. STIVARGA 40MG BAYER [Suspect]
     Indication: NEOPLASM MALIGNANT
     Route: 048
     Dates: start: 20131004

REACTIONS (4)
  - Pain [None]
  - Asthenia [None]
  - Aphagia [None]
  - Constipation [None]
